FAERS Safety Report 6707988-4 (Version None)
Quarter: 2010Q2

REPORT INFORMATION
  Report Type: 
  Country: None (occurrence: None)
  Receive Date: 20100503
  Receipt Date: 20091006
  Transmission Date: 20101027
  Serious: Yes (Other)
  Sender: FDA-Public Use
  Company Number: US-BAYER-200818232NA

PATIENT
  Age: 66 Year
  Sex: Female

DRUGS (7)
  1. BETASERON [Suspect]
     Indication: MULTIPLE SCLEROSIS
     Dosage: TOTAL DAILY DOSE: 8 MIU
     Route: 058
     Dates: start: 20061208
  2. LORTAB [Concomitant]
  3. RESTORIL [Concomitant]
  4. DARVOCET [Concomitant]
  5. LORAZEPAM [Concomitant]
  6. AMBIEN [Concomitant]
  7. BACLOFEN [Concomitant]

REACTIONS (6)
  - CHEST DISCOMFORT [None]
  - DYSKINESIA [None]
  - FEELING HOT [None]
  - MULTIPLE SCLEROSIS [None]
  - TREMOR [None]
  - WEIGHT INCREASED [None]
